FAERS Safety Report 6310038-5 (Version None)
Quarter: 2009Q3

REPORT INFORMATION
  Report Type: 
  Country: None (occurrence: None)
  Receive Date: 20090814
  Receipt Date: 20090807
  Transmission Date: 20100115
  Serious: Yes (Hospitalization, Other)
  Sender: FDA-Public Use
  Company Number: US-ABBOTT-08P-163-0478504-00

PATIENT
  Sex: Male
  Weight: 10.896 kg

DRUGS (14)
  1. HUMIRA [Suspect]
     Indication: RHEUMATOID ARTHRITIS
     Route: 050
     Dates: start: 20040101, end: 20080401
  2. HUMIRA [Suspect]
     Route: 050
     Dates: start: 20081101, end: 20090101
  3. HUMIRA [Suspect]
     Route: 058
     Dates: start: 20090101, end: 20090401
  4. HUMIRA [Suspect]
     Route: 058
     Dates: start: 20090701
  5. OXYCODONE [Concomitant]
     Indication: PAIN
     Route: 048
  6. OXYCODONE [Concomitant]
     Indication: INSOMNIA
  7. LORTAB [Concomitant]
     Indication: PAIN
     Route: 048
  8. LORTAB [Concomitant]
     Indication: RHEUMATOID ARTHRITIS
  9. SOMA [Concomitant]
     Indication: INSOMNIA
     Route: 048
  10. VALIUM [Concomitant]
     Indication: INSOMNIA
     Route: 048
  11. ADRENOGEL [Concomitant]
     Indication: HORMONE REPLACEMENT THERAPY
     Route: 061
  12. PROVENTIL-HFA [Concomitant]
     Indication: ASTHMA
     Route: 055
  13. NEBULIZER TREATMENT [Concomitant]
     Indication: ASTHMA
     Route: 055
  14. VITAMINS [Concomitant]
     Indication: VITAMIN SUPPLEMENTATION

REACTIONS (18)
  - APNOEA [None]
  - AZOTAEMIA [None]
  - DECREASED IMMUNE RESPONSIVENESS [None]
  - DRUG INEFFECTIVE [None]
  - ERYTHEMA [None]
  - GASTROENTERITIS VIRAL [None]
  - HYPERTENSION [None]
  - INFLAMMATION [None]
  - INJECTION SITE SWELLING [None]
  - NECROTISING FASCIITIS [None]
  - OEDEMA PERIPHERAL [None]
  - ONYCHOCLASIS [None]
  - PYREXIA [None]
  - SEPSIS [None]
  - SKIN HYPERTROPHY [None]
  - STAPHYLOCOCCAL SKIN INFECTION [None]
  - WHITE BLOOD CELL COUNT INCREASED [None]
  - WOUND DRAINAGE [None]
